FAERS Safety Report 21641947 (Version 2)
Quarter: 2022Q4

REPORT INFORMATION
  Report Type: Other
  Country: IE (occurrence: None)
  Receive Date: 20221125
  Receipt Date: 20221205
  Transmission Date: 20230113
  Serious: Yes (Other)
  Sender: FDA-Public Use
  Company Number: IE-ROCHE-3222657

PATIENT
  Age: 56 Year
  Sex: Female

DRUGS (1)
  1. OCREVUS [Suspect]
     Active Substance: OCRELIZUMAB
     Indication: Product used for unknown indication
     Route: 042
     Dates: start: 20220504

REACTIONS (2)
  - Nasopharyngitis [Recovering/Resolving]
  - SARS-CoV-2 test positive [Recovering/Resolving]

NARRATIVE: CASE EVENT DATE: 20221106
